FAERS Safety Report 7097158-5 (Version None)
Quarter: 2010Q4

REPORT INFORMATION
  Report Type: 
  Country: None (occurrence: None)
  Receive Date: 20101111
  Receipt Date: 20100323
  Transmission Date: 20110411
  Serious: No
  Sender: FDA-Public Use
  Company Number: US-KINGPHARMUSA00001-K201000349

PATIENT
  Sex: Male
  Weight: 113.38 kg

DRUGS (7)
  1. EMBEDA [Suspect]
     Indication: BACK PAIN
     Dosage: 20 MG, BID
     Route: 048
     Dates: start: 20100101, end: 20100101
  2. EMBEDA [Suspect]
     Dosage: 30 MG, BID
     Dates: start: 20100101
  3. CYMBALTA [Concomitant]
     Indication: PAIN
     Dosage: 90 MG, QD
  4. LISINOPRIL [Concomitant]
     Dosage: 20 MG, QD
  5. ATENOLOL [Concomitant]
     Dosage: 100 MG, QD
  6. HYDROCODONE [Concomitant]
     Indication: PAIN
     Dosage: 10 MG, PRN
  7. CRESTOR [Concomitant]
     Dosage: 10 MG, QD

REACTIONS (1)
  - OEDEMA PERIPHERAL [None]
